FAERS Safety Report 7933445-3 (Version None)
Quarter: 2011Q4

REPORT INFORMATION
  Report Type: 
  Country: None (occurrence: None)
  Receive Date: 20111122
  Receipt Date: 20111110
  Transmission Date: 20120403
  Serious: Yes (Hospitalization, Other)
  Sender: FDA-Public Use
  Company Number: US-ELI_LILLY_AND_COMPANY-US201111003837

PATIENT
  Sex: Female

DRUGS (8)
  1. FORTEO [Suspect]
     Indication: OSTEOPOROSIS
     Dosage: 20 UG, QD
     Dates: start: 20111028
  2. NEURONTIN [Concomitant]
  3. ABILIFY [Concomitant]
  4. CLONOPIN [Concomitant]
  5. FLEXERIL [Concomitant]
  6. TRENTAL [Concomitant]
  7. NEXIUM [Concomitant]
  8. CYMBALTA [Concomitant]

REACTIONS (5)
  - HEMIPARESIS [None]
  - CEREBROVASCULAR ACCIDENT [None]
  - VIITH NERVE PARALYSIS [None]
  - STRESS [None]
  - NAUSEA [None]
